FAERS Safety Report 13277164 (Version 1)
Quarter: 2017Q1

REPORT INFORMATION
  Report Type: Spontaneous
  Country: FR (occurrence: FR)
  Receive Date: 20170228
  Receipt Date: 20170228
  Transmission Date: 20170428
  Serious: Yes (Hospitalization)
  Sender: FDA-Public Use
  Company Number: FR-JNJFOC-20170222690

PATIENT
  Age: 81 Year
  Sex: Male
  Weight: 70 kg

DRUGS (5)
  1. LASILIX [Concomitant]
     Active Substance: FUROSEMIDE
     Route: 065
  2. EUPANTOL [Concomitant]
     Active Substance: PANTOPRAZOLE SODIUM
     Route: 065
  3. LEVEMIR [Concomitant]
     Active Substance: INSULIN DETEMIR
     Route: 065
  4. WARFARINE [Concomitant]
     Active Substance: WARFARIN
     Route: 065
  5. DUROGESIC [Suspect]
     Active Substance: FENTANYL
     Indication: ANALGESIC INTERVENTION SUPPORTIVE THERAPY
     Route: 062
     Dates: start: 20160615, end: 20161216

REACTIONS (5)
  - Sepsis [Unknown]
  - Inflammation [Unknown]
  - Somnolence [Recovered/Resolved]
  - Miosis [Recovered/Resolved]
  - Skin necrosis [Unknown]

NARRATIVE: CASE EVENT DATE: 201612
